FAERS Safety Report 9178329 (Version 1)
Quarter: 2012Q4

REPORT INFORMATION
  Report Type: 
  Country: FR (occurrence: AT)
  Receive Date: 20121029
  Receipt Date: 20121029
  Transmission Date: 20130627
  Serious: Yes (Other)
  Sender: FDA-Public Use
  Company Number: AT-FRI-1000039579

PATIENT
  Age: 51 Year
  Sex: Female
  Weight: 175 kg

DRUGS (8)
  1. MILNACIPRAN [Suspect]
     Dosage: 100 mg
     Dates: start: 20120206, end: 20120305
  2. ZELDOX [Suspect]
     Dosage: 120 mg
     Dates: start: 20120206, end: 20120213
  3. ZELDOX [Suspect]
     Dosage: 160 mg
     Dates: start: 20120214, end: 20120228
  4. ACEMIN [Suspect]
     Dosage: 5 mg
     Dates: start: 201107, end: 20120227
  5. PRAXITEN [Concomitant]
     Dates: start: 20120213, end: 20120307
  6. RISPERIDONA [Concomitant]
     Dates: start: 20120228, end: 20120307
  7. SELOKEN [Concomitant]
     Dates: start: 20120228, end: 20120307
  8. CIPRALEX [Concomitant]
     Dates: start: 20120306

REACTIONS (4)
  - Hyperprolactinaemia [Recovered/Resolved]
  - Tachycardia [Recovered/Resolved]
  - Menstrual disorder [Recovered/Resolved]
  - Hot flush [Recovered/Resolved]
